FAERS Safety Report 8539232-X (Version None)
Quarter: 2012Q3

REPORT INFORMATION
  Report Type: 
  Country: None (occurrence: None)
  Receive Date: 20120726
  Receipt Date: 20120717
  Transmission Date: 20120928
  Serious: Yes (Other)
  Sender: FDA-Public Use
  Company Number: US-JNJFOC-20090805147

PATIENT
  Sex: Female
  Weight: 42 kg

DRUGS (13)
  1. MULTI-VITAMINS [Concomitant]
     Indication: MEDICAL DIET
     Route: 048
     Dates: start: 20011024
  2. MIRALAX [Concomitant]
     Indication: CONSTIPATION
     Route: 048
     Dates: start: 20040623
  3. TRANXENE [Concomitant]
     Indication: EPILEPSY
     Route: 048
     Dates: start: 20021213
  4. CISAPRIDE [Suspect]
     Route: 048
     Dates: start: 20020913, end: 20090803
  5. CISAPRIDE [Suspect]
     Route: 048
     Dates: start: 20090812
  6. CISAPRIDE [Suspect]
     Indication: GASTROOESOPHAGEAL REFLUX DISEASE
     Route: 048
  7. PROTONIX [Concomitant]
     Indication: GASTROOESOPHAGEAL REFLUX DISEASE
     Route: 048
     Dates: start: 20040128
  8. BISACODYL [Concomitant]
     Indication: CONSTIPATION
     Route: 065
     Dates: start: 20021108
  9. CISAPRIDE [Suspect]
     Route: 048
  10. VALIUM [Concomitant]
     Indication: EPILEPSY
     Route: 054
     Dates: start: 20030128
  11. BECONASE AQ [Concomitant]
     Indication: RHINITIS ALLERGIC
     Route: 065
     Dates: start: 20040304
  12. CALCIUM CITRATE [Concomitant]
     Indication: OSTEOPOROSIS
     Route: 048
     Dates: start: 20090528
  13. CYPROHEPTADINE HCL [Concomitant]
     Indication: DECREASED APPETITE
     Route: 048
     Dates: start: 20051005

REACTIONS (1)
  - ELECTROCARDIOGRAM QT PROLONGED [None]
